FAERS Safety Report 6506260-5 (Version None)
Quarter: 2009Q4

REPORT INFORMATION
  Report Type: 
  Country: None (occurrence: None)
  Receive Date: 20091216
  Receipt Date: 20091201
  Transmission Date: 20100525
  Serious: Yes (Death, Other)
  Sender: FDA-Public Use
  Company Number: 2009003679

PATIENT
  Age: 47 Year
  Sex: Male

DRUGS (4)
  1. TARCEVA [Suspect]
     Dosage: ORAL
     Route: 048
     Dates: start: 20060530
  2. CISPLATIN [Concomitant]
  3. MITOMYCIN [Concomitant]
  4. VINBLASTINE SULFATE [Concomitant]

REACTIONS (7)
  - BRAIN OEDEMA [None]
  - CEREBRAL ISCHAEMIA [None]
  - INJURY [None]
  - LYMPHADENOPATHY MEDIASTINAL [None]
  - METASTASES TO CENTRAL NERVOUS SYSTEM [None]
  - NEUROLOGICAL SYMPTOM [None]
  - SKULL FRACTURED BASE [None]
